FAERS Safety Report 6035627-7 (Version None)
Quarter: 2009Q1

REPORT INFORMATION
  Report Type: 
  Country: None (occurrence: None)
  Receive Date: 20090113
  Receipt Date: 20090105
  Transmission Date: 20090719
  Serious: Yes (Hospitalization)
  Sender: FDA-Public Use
  Company Number: PHHY2008IE09801

PATIENT
  Sex: Female

DRUGS (7)
  1. EXELON [Suspect]
     Indication: DEMENTIA ALZHEIMER'S TYPE
     Dosage: 4.6 MG, UNK
     Route: 062
     Dates: start: 20080304, end: 20080404
  2. EXELON [Suspect]
     Dosage: 9.5 MG, UNK
     Route: 062
     Dates: start: 20080404, end: 20080512
  3. EXELON [Suspect]
     Dosage: 4.6 MG, UNK
     Route: 062
     Dates: start: 20080512
  4. EBIXA [Concomitant]
     Indication: DEMENTIA ALZHEIMER'S TYPE
     Dosage: 10 MG, BID
     Dates: start: 20080104
  5. FRUMIL [Concomitant]
     Indication: HYPERTENSION
     Dosage: 1 DAILY
  6. ALPRAZOLAM [Concomitant]
     Indication: AGITATION
     Dosage: 0.25 MG, TID
     Dates: start: 20080104
  7. TRENTAL [Concomitant]
     Indication: PERIPHERAL VASCULAR DISORDER
     Dosage: 400 MG, BID

REACTIONS (4)
  - ABDOMINAL DISCOMFORT [None]
  - AGGRESSION [None]
  - LOWER RESPIRATORY TRACT INFECTION [None]
  - NAUSEA [None]
